FAERS Safety Report 5357078-0 (Version None)
Quarter: 2007Q2

REPORT INFORMATION
  Report Type: 
  Country: None (occurrence: None)
  Receive Date: 20070612
  Receipt Date: 20070612
  Transmission Date: 20071010
  Serious: Yes (Other)
  Sender: FDA-Public Use
  Company Number: None

PATIENT
  Age: 4 Month
  Sex: Male
  Weight: 17.3 kg

DRUGS (4)
  1. FLOVENT HFA [Suspect]
     Indication: ASTHMA
     Dosage: 110 MCG 2 BID INHALED
     Route: 055
     Dates: start: 20061205, end: 20070115
  2. SINGULAIR [Concomitant]
  3. RHINOCORT [Concomitant]
  4. ZYRTEC [Concomitant]

REACTIONS (2)
  - FLUSHING [None]
  - VOMITING [None]
